FAERS Safety Report 5518962-8 (Version None)
Quarter: 2007Q4

REPORT INFORMATION
  Report Type: 
  Country: None (occurrence: None)
  Receive Date: 20071116
  Receipt Date: 20071108
  Transmission Date: 20080405
  Serious: Yes (Hospitalization, Other)
  Sender: FDA-Public Use
  Company Number: PHBS2007JP08594

PATIENT
  Age: 56 Year
  Sex: Male

DRUGS (11)
  1. SIMULECT [Suspect]
     Indication: RENAL TRANSPLANT
     Dosage: 20 MG, ONCE/SINGLE
     Route: 042
     Dates: start: 20070521, end: 20070521
  2. CELLCEPT [Concomitant]
     Indication: RENAL TRANSPLANT
     Dosage: 300 MG/D
     Route: 048
  3. NEORAL [Suspect]
     Indication: RENAL TRANSPLANT
     Dosage: UNK, UNK
     Route: 048
     Dates: end: 20070520
  4. SANDIMMUNE [Suspect]
     Indication: RENAL TRANSPLANT
     Dosage: 120 MG/D
     Route: 042
     Dates: start: 20070521
  5. SOLU-MEDROL [Concomitant]
     Indication: RENAL TRANSPLANT
     Dosage: 125 MG/D
     Route: 042
     Dates: start: 20070521
  6. PROPOFOL [Concomitant]
  7. FENTANYL [Concomitant]
     Route: 065
  8. VECURONIUM BROMIDE [Concomitant]
     Route: 065
  9. SEVOFLURANE [Concomitant]
     Route: 065
  10. OXYGEN [Concomitant]
  11. ANESTHETICS NOS [Concomitant]
     Route: 065

REACTIONS (7)
  - ANAPHYLACTIC SHOCK [None]
  - CONTINUOUS HAEMODIAFILTRATION [None]
  - HYPERSENSITIVITY [None]
  - HYPOTENSION [None]
  - KIDNEY TRANSPLANT REJECTION [None]
  - RESPIRATORY DISORDER [None]
  - URINE OUTPUT DECREASED [None]
